FAERS Safety Report 14243631 (Version 1)
Quarter: 2017Q4

REPORT INFORMATION
  Report Type: Spontaneous
  Country: EC (occurrence: EC)
  Receive Date: 20171201
  Receipt Date: 20171201
  Transmission Date: 20180321
  Serious: Yes (Other)
  Sender: FDA-Public Use
  Company Number: EC-PFIZER INC-2017513735

PATIENT
  Sex: Male

DRUGS (1)
  1. SUTENT [Suspect]
     Active Substance: SUNITINIB MALATE
     Indication: COLORECTAL CANCER METASTATIC
     Dosage: 50 MG, THREE CYCLES SCHEME TWO ONE

REACTIONS (4)
  - Toxicity to various agents [Unknown]
  - Fatigue [Unknown]
  - Parkinson^s disease [Unknown]
  - Neoplasm progression [Unknown]
